FAERS Safety Report 8539350-6 (Version None)
Quarter: 2012Q3

REPORT INFORMATION
  Report Type: 
  Country: None (occurrence: None)
  Receive Date: 20120726
  Receipt Date: 20110725
  Transmission Date: 20120928
  Serious: No
  Sender: FDA-Public Use
  Company Number: US-ASTRAZENECA-2011SE44635

PATIENT
  Age: 38 Year
  Sex: Female

DRUGS (4)
  1. SEROQUEL XR [Suspect]
     Indication: ANXIETY
     Route: 048
     Dates: start: 20110501
  2. XYREM [Suspect]
     Indication: NARCOLEPSY
     Dosage: DAILY
     Route: 048
  3. XANAX [Concomitant]
     Indication: ANXIETY
  4. SEROQUEL XR [Suspect]
     Indication: DEPRESSION
     Route: 048
     Dates: start: 20110501

REACTIONS (8)
  - SLEEP TALKING [None]
  - DRY MOUTH [None]
  - FEELING JITTERY [None]
  - SOMNAMBULISM [None]
  - IRRITABILITY [None]
  - BLOOD CHOLESTEROL INCREASED [None]
  - SEBORRHOEA [None]
  - INSOMNIA [None]
